FAERS Safety Report 5659121-8 (Version None)
Quarter: 2008Q1

REPORT INFORMATION
  Report Type: 
  Country: None (occurrence: None)
  Receive Date: 20080219
  Receipt Date: 20071116
  Transmission Date: 20080703
  Serious: No
  Sender: FDA-Public Use
  Company Number: WAES 0707USA03150

PATIENT
  Age: 62 Year
  Sex: Male

DRUGS (2)
  1. JANUVIA [Suspect]
     Indication: BLOOD GLUCOSE
     Dosage: 100 MG/DAILY/PO
     Route: 048
     Dates: start: 20070509, end: 20070701
  2. METFORMIN HCL [Concomitant]

REACTIONS (3)
  - BLOOD GLUCOSE INCREASED [None]
  - DIABETES MELLITUS [None]
  - DRUG INEFFECTIVE [None]
